FAERS Safety Report 8943368 (Version 3)
Quarter: 2013Q1

REPORT INFORMATION
  Report Type: Spontaneous
  Country: FR (occurrence: FR)
  Receive Date: 20121204
  Receipt Date: 20130115
  Transmission Date: 20140127
  Serious: Yes (Other)
  Sender: FDA-Public Use
  Company Number: FR-PFIZER INC-2012299923

PATIENT
  Age: 50 Year
  Sex: Male

DRUGS (9)
  1. NEURONTIN [Suspect]
     Dosage: 100 MG, 2X/DAY
     Route: 048
     Dates: start: 20121105, end: 20121109
  2. PREDNISOLONE [Concomitant]
     Dosage: 60 MG, 1X/DAY
     Route: 048
     Dates: start: 20121102, end: 20121103
  3. OXYCONTIN [Concomitant]
     Dosage: 10 MG, 2X/DAY
     Route: 048
     Dates: start: 20121102, end: 20121103
  4. OXYNORM [Concomitant]
     Dosage: 10 MG, 4X/DAY
     Route: 048
     Dates: start: 20121102, end: 20121103
  5. ATARAX [Concomitant]
     Dosage: 50 MG, 1X/DAY
     Route: 048
     Dates: start: 20121105
  6. PENTASA [Concomitant]
     Dosage: 2 G, 1X/DAY
     Route: 048
     Dates: start: 2010
  7. PERFALGAN [Concomitant]
     Dosage: AS NEEDED
     Route: 048
     Dates: start: 20121103
  8. IMOVANE [Concomitant]
     Dosage: UNK
     Route: 048
  9. ACUPAN [Concomitant]
     Dosage: VARIABLE DAILY DOSE
     Route: 048
     Dates: start: 20121103, end: 20121106

REACTIONS (1)
  - Mixed liver injury [Recovering/Resolving]
